FAERS Safety Report 14121078 (Version 2)
Quarter: 2019Q1

REPORT INFORMATION
  Report Type: Spontaneous
  Country: US (occurrence: US)
  Receive Date: 20171024
  Receipt Date: 20190322
  Transmission Date: 20190417
  Serious: No
  Sender: FDA-Public Use
  Company Number: US-SA-2017SA040720

PATIENT
  Age: 50 Year
  Sex: Male
  Weight: 90 kg

DRUGS (4)
  1. LUMIZYME [Suspect]
     Active Substance: ALGLUCOSIDASE ALFA
     Dosage: UNK
     Route: 041
     Dates: start: 20190226, end: 20190226
  2. IBUPROFEN. [Concomitant]
     Active Substance: IBUPROFEN
     Indication: PAIN
     Dosage: UNK UNK,PRN
  3. LUMIZYME [Suspect]
     Active Substance: ALGLUCOSIDASE ALFA
     Dosage: UNK
     Route: 041
     Dates: start: 20190226
  4. LUMIZYME [Suspect]
     Active Substance: ALGLUCOSIDASE ALFA
     Indication: GLYCOGEN STORAGE DISEASE TYPE II
     Dosage: 18.82 MG/KG,QOW
     Route: 041
     Dates: start: 20141001

REACTIONS (3)
  - Infusion related reaction [Unknown]
  - Fall [Not Recovered/Not Resolved]
  - Condition aggravated [Unknown]

NARRATIVE: CASE EVENT DATE: 20190226
